FAERS Safety Report 14524459 (Version 3)
Quarter: 2018Q1

REPORT INFORMATION
  Report Type: Spontaneous
  Country: PR (occurrence: PR)
  Receive Date: 20180213
  Receipt Date: 20180319
  Transmission Date: 20180509
  Serious: Yes (Other)
  Sender: FDA-Public Use
  Company Number: PR-PFIZER INC-2018061855

PATIENT
  Age: 76 Year
  Sex: Female
  Weight: 48.53 kg

DRUGS (1)
  1. IBRANCE [Suspect]
     Active Substance: PALBOCICLIB
     Indication: BREAST CANCER
     Dosage: 125 MG, CYCLIC (DAILY, FOR 21 DAYS/7 DAYS OFF )
     Route: 048
     Dates: start: 20180125

REACTIONS (7)
  - Platelet count decreased [Unknown]
  - Pneumonia [Unknown]
  - Red blood cell count decreased [Unknown]
  - Decreased appetite [Unknown]
  - White blood cell count decreased [Unknown]
  - Weight decreased [Unknown]
  - Haemoglobin decreased [Unknown]

NARRATIVE: CASE EVENT DATE: 2018
